FAERS Safety Report 9249714 (Version 1)
Quarter: 2013Q2

REPORT INFORMATION
  Report Type: Spontaneous
  Country: JP (occurrence: JP)
  Receive Date: 20130423
  Receipt Date: 20130423
  Transmission Date: 20140414
  Serious: Yes (Hospitalization, Other)
  Sender: FDA-Public Use
  Company Number: JP-GILEAD-2013-0068659

PATIENT
  Sex: Male

DRUGS (3)
  1. HEPSERA [Suspect]
     Indication: HEPATIC CIRRHOSIS
     Route: 048
  2. HEPSERA [Suspect]
     Route: 048
  3. ZEFIX [Suspect]
     Indication: HEPATIC CIRRHOSIS
     Route: 048

REACTIONS (2)
  - Multiple fractures [Unknown]
  - Fanconi syndrome acquired [Unknown]
